FAERS Safety Report 10078984 (Version 1)
Quarter: 2014Q2

REPORT INFORMATION
  Report Type: Spontaneous
  Country: US (occurrence: None)
  Receive Date: 20140414
  Receipt Date: 20140414
  Transmission Date: 20141212
  Serious: Yes (Life-Threatening, Hospitalization)
  Sender: FDA-Public Use
  Company Number: None

PATIENT
  Age: 70 Year
  Sex: Male
  Weight: 78 kg

DRUGS (5)
  1. LISINOPRIL [Suspect]
     Indication: HYPERTENSION
     Route: 048
  2. HYDRALAZINE 50 MG [Concomitant]
  3. ASPIRIN 81 MG [Concomitant]
  4. OMEPRAZOLE 40 MG [Concomitant]
  5. ONDANSETRON 4 MG [Concomitant]

REACTIONS (3)
  - Angioedema [None]
  - Pancreatitis [None]
  - Alcohol abuse [None]
